FAERS Safety Report 6460459-5 (Version None)
Quarter: 2009Q4

REPORT INFORMATION
  Report Type: 
  Country: None (occurrence: None)
  Receive Date: 20091130
  Receipt Date: 20091125
  Transmission Date: 20100525
  Serious: Yes (Death, Hospitalization)
  Sender: FDA-Public Use
  Company Number: JP-ASTRAZENECA-2002AP03162

PATIENT
  Age: 85 Year
  Sex: Male

DRUGS (5)
  1. IRESSA [Suspect]
     Indication: SQUAMOUS CELL CARCINOMA
     Route: 048
     Dates: start: 20020802, end: 20020819
  2. ASTOMIN [Concomitant]
     Route: 048
     Dates: start: 20020701
  3. MUCOSOLVAN [Concomitant]
     Route: 048
     Dates: start: 20020701
  4. HALCION [Concomitant]
     Route: 048
     Dates: start: 20020701
  5. THORACIC RADIOTHERAPY [Concomitant]
     Dosage: ADMINISTERED 8 + 2 MONTHS BEFORE IRESSA

REACTIONS (7)
  - DEPRESSED LEVEL OF CONSCIOUSNESS [None]
  - DIARRHOEA [None]
  - FALL [None]
  - INFECTION [None]
  - INTERSTITIAL LUNG DISEASE [None]
  - MULTI-ORGAN FAILURE [None]
  - RESPIRATORY FAILURE [None]
